FAERS Safety Report 18431505 (Version 2)
Quarter: 2020Q4

REPORT INFORMATION
  Report Type: Spontaneous
  Country: VN (occurrence: VN)
  Receive Date: 20201027
  Receipt Date: 20201109
  Transmission Date: 20210114
  Serious: Yes (Other)
  Sender: FDA-Public Use
  Company Number: VN-ROCHE-2702312

PATIENT
  Sex: Male

DRUGS (1)
  1. ACTILYSE [Suspect]
     Active Substance: ALTEPLASE
     Indication: ISCHAEMIC STROKE
     Dosage: 0.9 MG/KG FREQUENCY: 1, FREQUENCY UNIT: 809
     Route: 065
     Dates: start: 20200907, end: 20200907

REACTIONS (2)
  - Hemiplegia [Unknown]
  - NIH stroke scale score increased [Unknown]

NARRATIVE: CASE EVENT DATE: 20200907
